FAERS Safety Report 17039312 (Version 2)
Quarter: 2020Q1

REPORT INFORMATION
  Report Type: Spontaneous
  Country: US (occurrence: US)
  Receive Date: 20191115
  Receipt Date: 20200117
  Transmission Date: 20200409
  Serious: No
  Sender: FDA-Public Use
  Company Number: US-BAUSCH-BL-2019-060708

PATIENT
  Age: 49 Year
  Sex: Female

DRUGS (1)
  1. UCERIS [Suspect]
     Active Substance: BUDESONIDE
     Indication: PROCTITIS ULCERATIVE
     Dosage: 1 METERED DOSE STARTED APPROXIMATELY 3 YEARS AGO
     Route: 054

REACTIONS (7)
  - Abdominal pain [Not Recovered/Not Resolved]
  - Abdominal distension [Not Recovered/Not Resolved]
  - Product quality issue [Unknown]
  - Abdominal discomfort [Not Recovered/Not Resolved]
  - Product container issue [Unknown]
  - Therapy cessation [Unknown]
  - Flatulence [Not Recovered/Not Resolved]
